FAERS Safety Report 16614112 (Version 1)
Quarter: 2019Q3

REPORT INFORMATION
  Report Type: Report from Study
  Country: GB (occurrence: GB)
  Receive Date: 20190723
  Receipt Date: 20190723
  Transmission Date: 20191004
  Serious: Yes (Other)
  Sender: FDA-Public Use
  Company Number: GB-ROCHE-2355199

PATIENT

DRUGS (1)
  1. RITUXIMAB. [Suspect]
     Active Substance: RITUXIMAB
     Indication: B-CELL LYMPHOMA
     Route: 042

REACTIONS (9)
  - Blood bilirubin increased [Unknown]
  - Stevens-Johnson syndrome [Unknown]
  - Neutrophil count abnormal [Unknown]
  - Neutropenia [Unknown]
  - Platelet count abnormal [Unknown]
  - Lymphopenia [Unknown]
  - White blood cell count abnormal [Unknown]
  - Arrhythmia [Unknown]
  - Haemoglobin abnormal [Unknown]
